FAERS Safety Report 16388824 (Version 3)
Quarter: 2019Q3

REPORT INFORMATION
  Report Type: Spontaneous
  Country: BR (occurrence: BR)
  Receive Date: 20190604
  Receipt Date: 20190718
  Transmission Date: 20191004
  Serious: Yes (Other)
  Sender: FDA-Public Use
  Company Number: BR-PFIZER INC-2015156752

PATIENT
  Age: 65 Year
  Sex: Male

DRUGS (2)
  1. GENOTROPIN [Suspect]
     Active Substance: SOMATROPIN
     Indication: HORMONE REPLACEMENT THERAPY
     Dosage: 0.3 MG, 6X/WEEK
     Route: 058
     Dates: start: 2010
  2. GENOTROPIN [Suspect]
     Active Substance: SOMATROPIN
     Dosage: UNK
     Dates: start: 20150505

REACTIONS (7)
  - Malaise [Not Recovered/Not Resolved]
  - Influenza like illness [Not Recovered/Not Resolved]
  - Poor quality device used [Unknown]
  - Product dose omission [Unknown]
  - Cataract [Unknown]
  - Pyrexia [Not Recovered/Not Resolved]
  - Wrong technique in device usage process [Unknown]

NARRATIVE: CASE EVENT DATE: 20190529
